FAERS Safety Report 21932356 (Version 2)
Quarter: 2023Q2

REPORT INFORMATION
  Report Type: Report from Study
  Country: US (occurrence: US)
  Receive Date: 20230131
  Receipt Date: 20230424
  Transmission Date: 20230721
  Serious: Yes (Other)
  Sender: FDA-Public Use
  Company Number: US-ABBVIE-4282954

PATIENT
  Age: 64 Year
  Sex: Male
  Weight: 104 kg

DRUGS (7)
  1. IMBRUVICA [Suspect]
     Active Substance: IBRUTINIB
     Indication: Chronic lymphocytic leukaemia
     Dosage: FORM STRENGTH: 420 MG
     Route: 048
     Dates: start: 202011, end: 202012
  2. IMBRUVICA [Suspect]
     Active Substance: IBRUTINIB
     Indication: Chronic lymphocytic leukaemia
     Dosage: FORM STRENGTH: 420 MG
     Route: 048
     Dates: start: 202101, end: 202301
  3. IMBRUVICA [Suspect]
     Active Substance: IBRUTINIB
     Indication: Chronic lymphocytic leukaemia
     Dosage: BACK ON IMBRUVICA, FORM STRENGTH: 420 MG
     Route: 048
  4. PRILOSEC [Concomitant]
     Active Substance: OMEPRAZOLE MAGNESIUM
     Indication: Gastric ulcer
  5. TYLENOL [Concomitant]
     Active Substance: ACETAMINOPHEN
     Indication: Pyrexia
     Dates: start: 202012, end: 202012
  6. TYLENOL [Concomitant]
     Active Substance: ACETAMINOPHEN
     Indication: Pyrexia
     Dates: start: 202012, end: 202012
  7. HYDROCHLOROTHIAZIDE [Concomitant]
     Active Substance: HYDROCHLOROTHIAZIDE
     Indication: Fluid retention

REACTIONS (13)
  - Cataract [Recovered/Resolved]
  - Skin disorder [Recovered/Resolved]
  - Investigation abnormal [Unknown]
  - Cystitis [Recovered/Resolved]
  - Respiratory tract congestion [Recovered/Resolved]
  - Prostate cancer [Not Recovered/Not Resolved]
  - Hypertension [Recovering/Resolving]
  - COVID-19 [Recovered/Resolved]
  - Basosquamous carcinoma of skin [Recovered/Resolved]
  - Skin disorder [Recovered/Resolved]
  - Ageusia [Recovered/Resolved]
  - Basosquamous carcinoma of skin [Recovered/Resolved]
  - Cataract [Not Recovered/Not Resolved]

NARRATIVE: CASE EVENT DATE: 20201201
